FAERS Safety Report 6716576-5 (Version None)
Quarter: 2010Q2

REPORT INFORMATION
  Report Type: 
  Country: None (occurrence: None)
  Receive Date: 20100507
  Receipt Date: 20100504
  Transmission Date: 20101027
  Serious: Yes (Disabling)
  Sender: FDA-Public Use
  Company Number: MX-ABBOTT-10P-107-0633138-00

PATIENT
  Sex: Female
  Weight: 60 kg

DRUGS (11)
  1. HUMIRA [Suspect]
     Indication: RHEUMATOID ARTHRITIS
     Route: 058
     Dates: start: 20061109, end: 20091201
  2. HUMIRA [Suspect]
     Route: 058
     Dates: start: 20100101
  3. PREDNISONE [Concomitant]
     Indication: RHEUMATOID ARTHRITIS
     Route: 048
     Dates: start: 20080101, end: 20100101
  4. PREDNISONE [Concomitant]
     Route: 048
     Dates: start: 20100101
  5. METHOTREXATE [Concomitant]
     Indication: RHEUMATOID ARTHRITIS
     Route: 048
     Dates: start: 19960101, end: 20090901
  6. METHOTREXATE [Concomitant]
     Route: 048
     Dates: start: 20090901
  7. SULFASALAZINE [Concomitant]
     Indication: RHEUMATOID ARTHRITIS
     Route: 048
     Dates: start: 20080801, end: 20091201
  8. SULFASALAZINE [Concomitant]
     Route: 048
     Dates: start: 20091201
  9. DICLOFENAC [Concomitant]
     Indication: ANALGESIC THERAPY
     Dosage: 100 MG PER DAY AS NEEDED
     Route: 048
     Dates: start: 19970101
  10. OMEPRAZOLE [Concomitant]
     Indication: GASTRITIS
     Route: 048
     Dates: start: 20080801
  11. SUCRALFATE [Concomitant]
     Indication: GASTRITIS
     Route: 048
     Dates: start: 20080801, end: 20081001

REACTIONS (6)
  - DRUG DOSE OMISSION [None]
  - GASTRITIS [None]
  - MOBILITY DECREASED [None]
  - MUSCULOSKELETAL STIFFNESS [None]
  - PSORIATIC ARTHROPATHY [None]
  - SYNOVITIS [None]
